FAERS Safety Report 24965449 (Version 1)
Quarter: 2025Q1

REPORT INFORMATION
  Report Type: Spontaneous
  Country: US (occurrence: US)
  Receive Date: 20250213
  Receipt Date: 20250213
  Transmission Date: 20250408
  Serious: Yes (Other)
  Sender: MYLAN
  Company Number: US-MYLANLABS-2025M1011309

PATIENT
  Age: 52 Year
  Sex: Male

DRUGS (1)
  1. MERCAPTOPURINE [Suspect]
     Active Substance: MERCAPTOPURINE
     Indication: Crohn^s disease
     Dosage: 100 MILLIGRAM, QD
     Route: 065

REACTIONS (2)
  - Skin cancer [Recovering/Resolving]
  - Off label use [Unknown]
